FAERS Safety Report 23273617 (Version 2)
Quarter: 2023Q4

REPORT INFORMATION
  Report Type: Spontaneous
  Country: US (occurrence: US)
  Receive Date: 20231207
  Receipt Date: 20231212
  Transmission Date: 20240110
  Serious: Yes (Hospitalization)
  Sender: FDA-Public Use
  Company Number: US-ELI_LILLY_AND_COMPANY-US202311016771

PATIENT
  Age: 62 Year
  Sex: Male

DRUGS (3)
  1. TRULICITY [Suspect]
     Active Substance: DULAGLUTIDE
     Indication: Fluid retention
     Dosage: 0.75 MG, WEEKLY (1/W), EVERY MONDAY
     Route: 058
     Dates: start: 20231030
  2. TRULICITY [Suspect]
     Active Substance: DULAGLUTIDE
     Indication: Weight decreased
     Dosage: 0.75 MG, WEEKLY (1/W), EVERY MONDAY
     Route: 058
     Dates: start: 20231201
  3. LASIX [Concomitant]
     Active Substance: FUROSEMIDE
     Indication: Fluid retention
     Dosage: UNK, UNKNOWN
     Route: 065

REACTIONS (4)
  - Dizziness [Recovering/Resolving]
  - Brain fog [Not Recovered/Not Resolved]
  - Vertigo [Recovering/Resolving]
  - Off label use [Unknown]

NARRATIVE: CASE EVENT DATE: 20231030
